FAERS Safety Report 6868969-3 (Version None)
Quarter: 2010Q3

REPORT INFORMATION
  Report Type: 
  Country: None (occurrence: None)
  Receive Date: 20100722
  Receipt Date: 20080630
  Transmission Date: 20110219
  Serious: No
  Sender: FDA-Public Use
  Company Number: US-PFIZER INC-2008056103

PATIENT
  Sex: Male
  Weight: 109.77 kg

DRUGS (7)
  1. CHANTIX [Suspect]
     Indication: SMOKING CESSATION THERAPY
     Dates: start: 20080623
  2. LOVASTATIN [Concomitant]
     Route: 048
     Dates: start: 20080601
  3. METHOCARBAMOL [Concomitant]
     Route: 048
     Dates: start: 20080601
  4. MELOXICAM [Concomitant]
     Route: 048
     Dates: start: 20080601
  5. CYANOCOBALAMIN [Concomitant]
     Dates: start: 20080601
  6. FOLIC ACID [Concomitant]
     Dates: start: 20080601
  7. VITAMIN B-12 [Concomitant]
     Route: 048

REACTIONS (6)
  - ANXIETY [None]
  - DYSPNOEA [None]
  - ENERGY INCREASED [None]
  - FEELING JITTERY [None]
  - NERVOUSNESS [None]
  - TOBACCO WITHDRAWAL SYMPTOMS [None]
